FAERS Safety Report 13576201 (Version 7)
Quarter: 2018Q3

REPORT INFORMATION
  Report Type: Report from Study
  Country: US (occurrence: US)
  Receive Date: 20170524
  Receipt Date: 20180921
  Transmission Date: 20181010
  Serious: Yes (Hospitalization)
  Sender: FDA-Public Use
  Company Number: US-ACTELION-A-US2017-150370

PATIENT
  Age: 39 Year
  Sex: Female
  Weight: 110.66 kg

DRUGS (6)
  1. ADEMPAS [Suspect]
     Active Substance: RIOCIGUAT
     Indication: PRODUCT USED FOR UNKNOWN INDICATION
     Dosage: UNK
     Route: 065
  2. OPSUMIT [Suspect]
     Active Substance: MACITENTAN
     Dosage: UNK
     Route: 048
  3. OPSUMIT [Suspect]
     Active Substance: MACITENTAN
     Indication: PULMONARY ARTERIAL HYPERTENSION
     Dosage: 10 MG, QD
     Route: 048
  4. OMEPRAZOLE. [Concomitant]
     Active Substance: OMEPRAZOLE
  5. ADEMPAS [Suspect]
     Active Substance: RIOCIGUAT
     Dosage: 2.5 MG, TID
     Route: 065
     Dates: start: 20170707
  6. XARELTO [Concomitant]
     Active Substance: RIVAROXABAN

REACTIONS (31)
  - Cystitis [Unknown]
  - Dyspepsia [Unknown]
  - Peripheral swelling [Unknown]
  - Fatigue [Unknown]
  - Palpitations [Unknown]
  - Oedema peripheral [Unknown]
  - Nausea [Unknown]
  - Depression [Unknown]
  - Burning sensation [Unknown]
  - Weight decreased [Unknown]
  - Gingival bleeding [Unknown]
  - Cough [Unknown]
  - Abdominal discomfort [Unknown]
  - Treatment noncompliance [Unknown]
  - Decreased appetite [Unknown]
  - Oropharyngeal pain [Unknown]
  - Hypotension [Unknown]
  - Weight increased [Unknown]
  - Constipation [Unknown]
  - Localised oedema [Unknown]
  - Therapy non-responder [Unknown]
  - Pulmonary thrombosis [Unknown]
  - Upper respiratory tract infection [Unknown]
  - Dyspnoea [Unknown]
  - Underdose [Unknown]
  - Nasopharyngitis [Unknown]
  - Dysphagia [Unknown]
  - Sputum discoloured [Unknown]
  - Dizziness [Unknown]
  - Heart rate irregular [Unknown]
  - Kidney infection [Unknown]
